FAERS Safety Report 6240709-0 (Version None)
Quarter: 2009Q2

REPORT INFORMATION
  Report Type: 
  Country: None (occurrence: None)
  Receive Date: 20090623
  Receipt Date: 20090217
  Transmission Date: 20091009
  Serious: No
  Sender: FDA-Public Use
  Company Number: US-ASTRAZENECA-2009UW04473

PATIENT
  Age: 85 Year
  Sex: Female
  Weight: 49.9 kg

DRUGS (8)
  1. PULMICORT RESPULES [Suspect]
     Indication: ASTHMA
     Route: 055
     Dates: start: 20081201
  2. ASPIRIN [Concomitant]
  3. CALCIUM [Concomitant]
  4. MULTI-VITAMIN [Concomitant]
  5. LOPRESIMIDE [Concomitant]
  6. LOPRESSOR [Concomitant]
  7. LEVOPHED [Concomitant]
  8. PRAVACHOL [Concomitant]

REACTIONS (2)
  - EYE DISORDER [None]
  - PRODUCT TASTE ABNORMAL [None]
